FAERS Safety Report 6648376-9 (Version None)
Quarter: 2010Q1

REPORT INFORMATION
  Report Type: 
  Country: None (occurrence: None)
  Receive Date: 20100324
  Receipt Date: 20100310
  Transmission Date: 20100710
  Serious: Yes (Hospitalization)
  Sender: FDA-Public Use
  Company Number: US-ELI_LILLY_AND_COMPANY-US201003004486

PATIENT
  Sex: Female

DRUGS (8)
  1. FORTEO [Suspect]
     Indication: OSTEOPOROSIS
     Dosage: 20 UG, DAILY (1/D)
     Dates: start: 20100304, end: 20100305
  2. FORTEO [Suspect]
     Dosage: 20 UG, DAILY (1/D)
     Dates: start: 20100309
  3. OMEPRAZOLE [Concomitant]
     Dosage: 20 MG, DAILY (1/D)
  4. MELOXICAM [Concomitant]
     Dosage: 15 MG, DAILY (1/D)
  5. TRAMADOL [Concomitant]
     Dosage: UNK, AS NEEDED
  6. ASPIRIN [Concomitant]
     Dosage: UNK, AS NEEDED
  7. ADVIL LIQUI-GELS [Concomitant]
     Dosage: UNK, AS NEEDED
  8. MOTRIN [Concomitant]

REACTIONS (5)
  - DIARRHOEA [None]
  - ILL-DEFINED DISORDER [None]
  - INFLUENZA [None]
  - VIRAL INFECTION [None]
  - VOMITING [None]
